FAERS Safety Report 20239185 (Version 3)
Quarter: 2023Q1

REPORT INFORMATION
  Report Type: Spontaneous
  Country: JP (occurrence: JP)
  Receive Date: 20211228
  Receipt Date: 20230120
  Transmission Date: 20230418
  Serious: No
  Sender: FDA-Public Use
  Company Number: JP-NOVARTISPH-NVSJ2021JP021260

PATIENT
  Age: 17 Year
  Sex: Male

DRUGS (7)
  1. VOTRIENT [Suspect]
     Active Substance: PAZOPANIB HYDROCHLORIDE
     Indication: Osteosarcoma recurrent
     Dosage: UNK
     Route: 048
  2. ETOPOSIDE [Suspect]
     Active Substance: ETOPOSIDE
     Indication: Osteosarcoma recurrent
     Dosage: UNK
     Route: 041
  3. GEMCITABINE [Concomitant]
     Active Substance: GEMCITABINE
     Indication: Osteosarcoma recurrent
     Dosage: UNK
     Route: 065
  4. DOCETAXEL [Concomitant]
     Active Substance: DOCETAXEL
     Indication: Osteosarcoma recurrent
     Dosage: UNK
     Route: 065
  5. TEMOZOLOMIDE [Concomitant]
     Active Substance: TEMOZOLOMIDE
     Indication: Osteosarcoma recurrent
     Dosage: UNK
     Route: 065
  6. IRINOTECAN HYDROCHLORIDE [Concomitant]
     Active Substance: IRINOTECAN HYDROCHLORIDE
     Indication: Osteosarcoma recurrent
     Dosage: UNK
     Route: 065
  7. CARBOPLATIN [Concomitant]
     Active Substance: CARBOPLATIN
     Indication: Osteosarcoma recurrent
     Dosage: UNK
     Route: 065

REACTIONS (1)
  - Product use in unapproved indication [Unknown]
